FAERS Safety Report 5836642-6 (Version None)
Quarter: 2008Q3

REPORT INFORMATION
  Report Type: 
  Country: None (occurrence: None)
  Receive Date: 20080807
  Receipt Date: 20080707
  Transmission Date: 20090109
  Serious: No
  Sender: FDA-Public Use
  Company Number: US-BAYER-200715713NA

PATIENT
  Age: 38 Year
  Sex: Female
  Weight: 69 kg

DRUGS (1)
  1. MIRENA [Suspect]
     Indication: CONTRACEPTION
     Route: 015
     Dates: start: 20071101, end: 20071126

REACTIONS (4)
  - ABDOMINAL PAIN LOWER [None]
  - CHILLS [None]
  - MENSTRUAL DISORDER [None]
  - VAGINAL HAEMORRHAGE [None]
